FAERS Safety Report 23726820 (Version 1)
Quarter: 2024Q2

REPORT INFORMATION
  Report Type: Spontaneous
  Country: FR (occurrence: FR)
  Receive Date: 20240410
  Receipt Date: 20240410
  Transmission Date: 20240716
  Serious: Yes (Hospitalization)
  Sender: FDA-Public Use
  Company Number: FR-AFSSAPS-GR2024000044

PATIENT
  Age: 34 Year
  Sex: Male
  Weight: 103.5 kg

DRUGS (3)
  1. RISPERIDONE [Suspect]
     Active Substance: RISPERIDONE
     Indication: Intentional overdose
     Dosage: 200 DOSAGE FORM, IN TOTAL, 200 TABS X 2 MG
     Route: 048
     Dates: start: 20231212, end: 20231212
  2. ZOPICLONE [Suspect]
     Active Substance: ZOPICLONE
     Indication: Intentional overdose
     Dosage: 14 DOSAGE FORM, IN TOTAL, 14 TABS X 7.5 MG
     Route: 048
     Dates: start: 20231212, end: 20231212
  3. LOXAPINE [Suspect]
     Active Substance: LOXAPINE
     Indication: Intentional overdose
     Dosage: 60 DOSAGE FORM, IN TOTAL, 60 TABS X 25 MG
     Route: 048
     Dates: start: 20231212, end: 20231212

REACTIONS (6)
  - Hypotension [Recovered/Resolved]
  - Electrocardiogram QT prolonged [Recovered/Resolved]
  - Poisoning deliberate [Recovered/Resolved]
  - Somnolence [Recovered/Resolved]
  - Hyperglycaemia [Recovered/Resolved]
  - Anticholinergic syndrome [Recovered/Resolved]

NARRATIVE: CASE EVENT DATE: 20231212
